FAERS Safety Report 18753444 (Version 3)
Quarter: 2021Q1

REPORT INFORMATION
  Report Type: Report from Study
  Country: CA (occurrence: CA)
  Receive Date: 20210118
  Receipt Date: 20210329
  Transmission Date: 20210419
  Serious: Yes (Other)
  Sender: FDA-Public Use
  Company Number: CA-TAKEDA-2021TUS003182

PATIENT
  Age: 22 Year
  Sex: Male

DRUGS (3)
  1. PENTASA [Concomitant]
     Active Substance: MESALAMINE
     Dosage: 4 MILLIGRAM, QD
     Dates: start: 202009
  2. VEDOLIZUMAB [Suspect]
     Active Substance: VEDOLIZUMAB
     Dosage: 300 MILLIGRAM
     Route: 042
     Dates: end: 20210224
  3. VEDOLIZUMAB [Suspect]
     Active Substance: VEDOLIZUMAB
     Indication: COLITIS ULCERATIVE
     Dosage: 300 MILLIGRAM
     Route: 042
     Dates: start: 20201118

REACTIONS (2)
  - Drug ineffective [Unknown]
  - Colitis ulcerative [Not Recovered/Not Resolved]
